FAERS Safety Report 13946649 (Version 2)
Quarter: 2018Q1

REPORT INFORMATION
  Report Type: Spontaneous
  Country: US (occurrence: US)
  Receive Date: 20170907
  Receipt Date: 20180105
  Transmission Date: 20180508
  Serious: Yes (Hospitalization)
  Sender: FDA-Public Use
  Company Number: US-DSJP-DSU-2017-135583

PATIENT

DRUGS (3)
  1. BENICAR HCT [Suspect]
     Active Substance: HYDROCHLOROTHIAZIDE\OLMESARTAN MEDOXOMIL
     Indication: HYPERTENSION
     Dosage: 20/12.5MG, QD
     Route: 048
     Dates: start: 20110510, end: 20170426
  2. BENICAR [Suspect]
     Active Substance: OLMESARTAN MEDOXOMIL
     Indication: HYPERTENSION
     Dosage: 20 MG, QD
     Dates: start: 20061101, end: 20061206
  3. BENICAR [Suspect]
     Active Substance: OLMESARTAN MEDOXOMIL
     Dosage: 40 MG (HALF TABLET), QD
     Dates: start: 20061206

REACTIONS (9)
  - Gastrointestinal haemorrhage [Unknown]
  - Haematochezia [Unknown]
  - Gastrooesophageal reflux disease [Recovering/Resolving]
  - Drug administration error [Unknown]
  - Weight decreased [Recovered/Resolved]
  - Haemorrhoids [Unknown]
  - Diverticulum intestinal [Unknown]
  - Hiatus hernia [Unknown]
  - Anaemia [Unknown]

NARRATIVE: CASE EVENT DATE: 20061101
